FAERS Safety Report 15919521 (Version 1)
Quarter: 2019Q1

REPORT INFORMATION
  Report Type: Spontaneous
  Country: US (occurrence: US)
  Receive Date: 20190205
  Receipt Date: 20190205
  Transmission Date: 20190417
  Serious: No
  Sender: FDA-Public Use
  Company Number: US-ROCHE-2092836

PATIENT
  Sex: Male
  Weight: 83.99 kg

DRUGS (2)
  1. XOLAIR [Suspect]
     Active Substance: OMALIZUMAB
     Indication: PRODUCT USED FOR UNKNOWN INDICATION
     Dosage: ONGOING: YES
     Route: 065
  2. XOLAIR [Suspect]
     Active Substance: OMALIZUMAB
     Dosage: ONGOING: NO
     Route: 065

REACTIONS (10)
  - Hot flush [Unknown]
  - Paraesthesia [Unknown]
  - Headache [Recovering/Resolving]
  - Ocular discomfort [Unknown]
  - Abdominal pain upper [Unknown]
  - Diarrhoea [Unknown]
  - Sinusitis [Unknown]
  - Pain [Unknown]
  - Chest discomfort [Unknown]
  - Vision blurred [Unknown]
